FAERS Safety Report 6981746-8 (Version None)
Quarter: 2010Q3

REPORT INFORMATION
  Report Type: 
  Country: None (occurrence: None)
  Receive Date: 20100914
  Receipt Date: 20091014
  Transmission Date: 20110219
  Serious: No
  Sender: FDA-Public Use
  Company Number: US-PFIZER INC-2009265969

PATIENT
  Sex: Female
  Weight: 63.5 kg

DRUGS (5)
  1. LYRICA [Suspect]
     Indication: NEURALGIA
     Dosage: 50 MG, 1X/DAY
     Dates: start: 20090701
  2. METFORMIN [Concomitant]
     Indication: DIABETES MELLITUS
     Dosage: 500 MG, UNK
  3. FLUOXETINE [Concomitant]
     Dosage: 20 MG, 1X/DAY
  4. FUROSEMIDE [Concomitant]
     Dosage: 20 MG, 1X/DAY
  5. RESTORIL [Concomitant]
     Dosage: 30 MG, 1X/DAY

REACTIONS (1)
  - WEIGHT INCREASED [None]
